FAERS Safety Report 5465095-5 (Version None)
Quarter: 2007Q3

REPORT INFORMATION
  Report Type: 
  Country: None (occurrence: None)
  Receive Date: 20070820
  Receipt Date: 20070611
  Transmission Date: 20080115
  Serious: No
  Sender: FDA-Public Use
  Company Number: TPA2007A01288

PATIENT
  Age: 41 Year
  Sex: Male
  Weight: 83.9154 kg

DRUGS (4)
  1. ROZEREM [Suspect]
     Indication: INSOMNIA
     Dosage: 8 MG, HS,PER ORAL
     Route: 048
     Dates: start: 20070609, end: 20070610
  2. TOPROL-XL [Concomitant]
  3. UNKNOWN HIGH CHOLESTEROL MEDICATION (ALL THERAPEUTIC PRODUCTS) [Concomitant]
  4. RESTORIL [Concomitant]

REACTIONS (2)
  - DRUG INEFFECTIVE [None]
  - INITIAL INSOMNIA [None]
